FAERS Safety Report 8827886 (Version 1)
Quarter: 2012Q4

REPORT INFORMATION
  Report Type: 
  Country: US (occurrence: US)
  Receive Date: 20121008
  Receipt Date: 20121008
  Transmission Date: 20130627
  Serious: No
  Sender: FDA-Public Use
  Company Number: US-PFIZER INC-2012247850

PATIENT
  Sex: Female

DRUGS (2)
  1. GEODON [Suspect]
     Dosage: UNK
  2. GEODON [Suspect]
     Dosage: 60 mg, 2x/day

REACTIONS (2)
  - Chest pain [Unknown]
  - Stress [Unknown]
